FAERS Safety Report 5198946-2 (Version None)
Quarter: 2007Q1

REPORT INFORMATION
  Report Type: 
  Country: None (occurrence: None)
  Receive Date: 20070104
  Receipt Date: 20061009
  Transmission Date: 20070707
  Serious: Yes (Death, Hospitalization)
  Sender: FDA-Public Use
  Company Number: ES-ROCHE-424475

PATIENT
  Age: 49 Year
  Sex: Female

DRUGS (3)
  1. CAPECITABINE [Suspect]
     Indication: BREAST CANCER
     Route: 048
     Dates: start: 20050815, end: 20050915
  2. CAPECITABINE [Suspect]
     Dosage: DOSAGE LOWERED DUE TO FEVER.
     Route: 048
     Dates: start: 20050916, end: 20050916
  3. CAPECITABINE [Suspect]
     Route: 048
     Dates: start: 20050918, end: 20050920

REACTIONS (5)
  - ANAEMIA [None]
  - BREAST CANCER [None]
  - HAEMATEMESIS [None]
  - MALIGNANT NEOPLASM PROGRESSION [None]
  - NEOPLASM MALIGNANT [None]
